FAERS Safety Report 15987492 (Version 1)
Quarter: 2019Q1

REPORT INFORMATION
  Report Type: Spontaneous
  Country: IT (occurrence: IT)
  Receive Date: 20190220
  Receipt Date: 20190220
  Transmission Date: 20190418
  Serious: Yes (Other)
  Sender: FDA-Public Use
  Company Number: PHHY2019IT038569

PATIENT
  Age: 46 Year
  Sex: Female

DRUGS (2)
  1. DABRAFENIB [Suspect]
     Active Substance: DABRAFENIB
     Indication: METASTATIC MALIGNANT MELANOMA
     Dosage: 300 MG, QD
     Route: 065
  2. TRAMETINIB [Suspect]
     Active Substance: TRAMETINIB
     Indication: METASTATIC MALIGNANT MELANOMA
     Dosage: 2 MG, QD
     Route: 065

REACTIONS (8)
  - Rash [Unknown]
  - Rash erythematous [Unknown]
  - Skin oedema [Unknown]
  - Acute febrile neutrophilic dermatosis [Unknown]
  - Skin plaque [Unknown]
  - Pyrexia [Unknown]
  - Erythema [Unknown]
  - Rash vesicular [Unknown]
